FAERS Safety Report 5828616-6 (Version None)
Quarter: 2008Q3

REPORT INFORMATION
  Report Type: 
  Country: None (occurrence: None)
  Receive Date: 20080731
  Receipt Date: 20080725
  Transmission Date: 20090109
  Serious: Yes (Hospitalization)
  Sender: FDA-Public Use
  Company Number: A0739590A

PATIENT
  Sex: Male

DRUGS (5)
  1. ADVAIR DISKUS 100/50 [Suspect]
     Indication: ASTHMA
     Dosage: 1PUFF TWICE PER DAY
     Route: 055
     Dates: end: 20060601
  2. ALBUTEROL [Concomitant]
  3. METHADONE HCL [Concomitant]
  4. MORPHINE [Concomitant]
  5. VICODIN [Concomitant]

REACTIONS (10)
  - CHOKING [None]
  - DYSPHAGIA [None]
  - HYPOTHYROIDISM [None]
  - LETHARGY [None]
  - LOCAL SWELLING [None]
  - LUNG INFECTION [None]
  - MOOD SWINGS [None]
  - PALPITATIONS [None]
  - THYROID DISORDER [None]
  - WEIGHT INCREASED [None]
